FAERS Safety Report 13716726 (Version 1)
Quarter: 2017Q3

REPORT INFORMATION
  Report Type: Spontaneous
  Country: ZA (occurrence: ZA)
  Receive Date: 20170705
  Receipt Date: 20170705
  Transmission Date: 20171127
  Serious: No
  Sender: FDA-Public Use
  Company Number: ZA-LUPIN PHARMACEUTICALS INC.-2017-00299

PATIENT
  Sex: Female

DRUGS (1)
  1. SIMVACOR 40 MG [Suspect]
     Active Substance: SIMVASTATIN
     Indication: SLEEP DISORDER
     Dosage: UNK UNK,UNK,UNKNOWN
     Route: 065

REACTIONS (1)
  - Muscle spasms [Unknown]
